FAERS Safety Report 7563749-8 (Version None)
Quarter: 2011Q2

REPORT INFORMATION
  Report Type: 
  Country: None (occurrence: None)
  Receive Date: 20110622
  Receipt Date: 20110617
  Transmission Date: 20111010
  Serious: Yes (Hospitalization)
  Sender: FDA-Public Use
  Company Number: JP-MERCK-1106USA01464

PATIENT

DRUGS (2)
  1. JANUVIA [Suspect]
     Indication: TYPE 2 DIABETES MELLITUS
     Route: 048
     Dates: start: 20110205, end: 20110501
  2. LIPITOR [Concomitant]
     Route: 065
     Dates: start: 20100605

REACTIONS (3)
  - THYROID DISORDER [None]
  - PYREXIA [None]
  - LIVER FUNCTION TEST ABNORMAL [None]
